FAERS Safety Report 24311484 (Version 1)
Quarter: 2024Q3

REPORT INFORMATION
  Report Type: Spontaneous
  Country: CO (occurrence: CO)
  Receive Date: 20240912
  Receipt Date: 20240912
  Transmission Date: 20241016
  Serious: Yes (Other)
  Sender: Steriscience PTE
  Company Number: CO-STERISCIENCE B.V.-2024-ST-001359

PATIENT
  Age: 23 Year
  Sex: Female

DRUGS (12)
  1. LABETALOL [Suspect]
     Active Substance: LABETALOL\LABETALOL HYDROCHLORIDE
     Indication: Superimposed pre-eclampsia
     Dosage: UNK
     Route: 042
  2. METOPROLOL [Suspect]
     Active Substance: METOPROLOL
     Indication: Secondary hypertension
     Dosage: 50 MILLIGRAM, OD
     Route: 065
  3. METOPROLOL [Suspect]
     Active Substance: METOPROLOL
     Dosage: 100 MILLIGRAM, BID
     Route: 065
  4. NIFEDIPINE [Suspect]
     Active Substance: NIFEDIPINE
     Indication: Secondary hypertension
     Dosage: 30 MILLIGRAM, OD
     Route: 065
  5. NIFEDIPINE [Suspect]
     Active Substance: NIFEDIPINE
     Dosage: 30 MILLIGRAMS, BID
     Route: 065
  6. HYDROCHLOROTHIAZIDE [Suspect]
     Active Substance: HYDROCHLOROTHIAZIDE
     Indication: Secondary hypertension
     Dosage: UNK
     Route: 065
  7. ERYTHROPOIETIN [Suspect]
     Active Substance: ERYTHROPOIETIN
     Indication: Product used for unknown indication
     Dosage: 8000 INTERNATIONAL UNIT, QW
  8. IRON [Suspect]
     Active Substance: IRON
     Indication: Product used for unknown indication
     Dosage: UNK
     Route: 048
  9. DEXTROSE [Suspect]
     Active Substance: DEXTROSE\DEXTROSE MONOHYDRATE
     Indication: Peritoneal dialysis
     Dosage: FOUR DAILY MANUAL EXCHANGES OF 1.5% GLUCOSE [DEXTROSE] SOLUTION 2000ML EVERY FOUR TO SIX HOURS
     Route: 065
  10. DEXTROSE [Suspect]
     Active Substance: DEXTROSE\DEXTROSE MONOHYDRATE
     Indication: End stage renal disease
     Dosage: CAPD WAS INTENSIFIED WITH SIX EXCHANGES OF 1.5% GLUCOSE [DEXTROSE] SOLUTION 2000ML
     Route: 065
  11. BETAMETHASONE [Suspect]
     Active Substance: BETAMETHASONE
     Indication: Product used for unknown indication
     Dosage: UNK
     Route: 065
  12. MAGNESIUM SULFATE [Suspect]
     Active Substance: MAGNESIUM SULFATE\MAGNESIUM SULFATE HEPTAHYDRATE
     Indication: Seizure prophylaxis
     Dosage: UNK
     Route: 065

REACTIONS (2)
  - Premature delivery [Unknown]
  - Maternal exposure during pregnancy [Unknown]
